FAERS Safety Report 17389906 (Version 2)
Quarter: 2020Q1

REPORT INFORMATION
  Report Type: Spontaneous
  Country: SE (occurrence: SE)
  Receive Date: 20200207
  Receipt Date: 20200215
  Transmission Date: 20200409
  Serious: Yes (Hospitalization)
  Sender: FDA-Public Use
  Company Number: NVSC2020SE028883

PATIENT
  Sex: Female

DRUGS (5)
  1. LERGIGAN FORTE (PROMETHAZINE HYDROCHLORIDE) [Suspect]
     Active Substance: PROMETHAZINE HYDROCHLORIDE
     Indication: PRODUCT USED FOR UNKNOWN INDICATION
     Dosage: 1000 MG (20 ST)
     Route: 048
     Dates: start: 20180405, end: 20180405
  2. AZATHIOPRINE. [Suspect]
     Active Substance: AZATHIOPRINE
     Indication: PRODUCT USED FOR UNKNOWN INDICATION
     Dosage: UNK (OKLAR M?NGD)
     Route: 048
     Dates: start: 20180405, end: 20180405
  3. PENTASA [Suspect]
     Active Substance: MESALAMINE
     Indication: PRODUCT USED FOR UNKNOWN INDICATION
     Dosage: UNK (OKLAR M?NGD)
     Route: 048
     Dates: start: 20180405, end: 20180405
  4. ELVANSE [Suspect]
     Active Substance: LISDEXAMFETAMINE DIMESYLATE
     Indication: PRODUCT USED FOR UNKNOWN INDICATION
     Dosage: 420 MG
     Route: 048
     Dates: start: 20180405, end: 20180405
  5. PREDNISOLONE. [Suspect]
     Active Substance: PREDNISOLONE
     Indication: PRODUCT USED FOR UNKNOWN INDICATION
     Dosage: UNK
     Route: 048
     Dates: start: 20180405, end: 20180405

REACTIONS (4)
  - Depressed level of consciousness [Unknown]
  - Intentional overdose [Unknown]
  - Intentional self-injury [Unknown]
  - Tachycardia [Unknown]

NARRATIVE: CASE EVENT DATE: 20180405
